FAERS Safety Report 6747000-4 (Version None)
Quarter: 2010Q2

REPORT INFORMATION
  Report Type: 
  Country: None (occurrence: None)
  Receive Date: 20100528
  Receipt Date: 20100517
  Transmission Date: 20101027
  Serious: Yes (Other)
  Sender: FDA-Public Use
  Company Number: PHHY2010US28636

PATIENT
  Sex: Female

DRUGS (6)
  1. RECLAST [Suspect]
     Indication: OSTEOPOROSIS
     Dosage: 5 MG/100 CC
     Route: 042
     Dates: start: 20091028, end: 20091028
  2. PROPRANOLOL [Concomitant]
  3. CLONAZEPAM [Concomitant]
  4. GABAPENTIN [Concomitant]
  5. CALCIUM W/VITAMIN D NOS [Concomitant]
  6. PRILOSEC [Concomitant]

REACTIONS (6)
  - INFLUENZA LIKE ILLNESS [None]
  - JAW DISORDER [None]
  - OESOPHAGEAL OPERATION [None]
  - SEASONAL ALLERGY [None]
  - TOOTH EXTRACTION [None]
  - TOOTH FRACTURE [None]
